FAERS Safety Report 6959386-6 (Version None)
Quarter: 2010Q3

REPORT INFORMATION
  Report Type: 
  Country: None (occurrence: None)
  Receive Date: 20100831
  Receipt Date: 20100831
  Transmission Date: 20110219
  Serious: Yes (Hospitalization)
  Sender: FDA-Public Use
  Company Number: None

PATIENT
  Age: 61 Year
  Sex: Male
  Weight: 86 kg

DRUGS (1)
  1. TERAZOSIN HCL [Suspect]
     Indication: HYPERTENSION
     Dosage: 2 MG HS PO
     Route: 048
     Dates: start: 20100201, end: 20100728

REACTIONS (1)
  - SYNCOPE [None]
